FAERS Safety Report 22105622 (Version 1)
Quarter: 2023Q1

REPORT INFORMATION
  Report Type: Report from Study
  Country: US (occurrence: US)
  Receive Date: 20230317
  Receipt Date: 20230317
  Transmission Date: 20230418
  Serious: Yes (Other)
  Sender: FDA-Public Use
  Company Number: US-ABBVIE-4294857

PATIENT
  Age: 63 Year
  Sex: Female
  Weight: 65.77 kg

DRUGS (7)
  1. HUMIRA [Suspect]
     Active Substance: ADALIMUMAB
     Indication: Crohn^s disease
     Dosage: FORM STRENGTH: 40 MILLIGRAM
     Route: 058
     Dates: start: 202008
  2. HUMIRA [Suspect]
     Active Substance: ADALIMUMAB
     Dosage: CITRATE FREE
     Route: 058
  3. PROTONIX [Concomitant]
     Active Substance: PANTOPRAZOLE SODIUM
     Indication: Gastrooesophageal reflux disease
  4. BUPROPION [Concomitant]
     Active Substance: BUPROPION
     Indication: Depression
  5. CLONAZEPAM [Concomitant]
     Active Substance: CLONAZEPAM
     Indication: Anxiety
  6. LISINOPRIL [Concomitant]
     Active Substance: LISINOPRIL
     Indication: Hypertension
  7. AMLODIPINE [Concomitant]
     Active Substance: AMLODIPINE BESYLATE
     Indication: Hypertension

REACTIONS (7)
  - Shoulder operation [Recovering/Resolving]
  - Mobility decreased [Recovered/Resolved]
  - Ligament rupture [Recovered/Resolved]
  - Inflammation [Unknown]
  - Arthralgia [Recovered/Resolved]
  - Tendon rupture [Recovered/Resolved]
  - Articular calcification [Recovered/Resolved]

NARRATIVE: CASE EVENT DATE: 20220401
